FAERS Safety Report 20322467 (Version 8)
Quarter: 2022Q3

REPORT INFORMATION
  Report Type: Report from Study
  Country: US (occurrence: US)
  Receive Date: 20220111
  Receipt Date: 20220824
  Transmission Date: 20221027
  Serious: Yes (Other)
  Sender: FDA-Public Use
  Company Number: US-NOVARTISTESTPH-NVSC2022US005057

PATIENT
  Sex: Female

DRUGS (1)
  1. COSENTYX [Suspect]
     Active Substance: SECUKINUMAB
     Indication: Psoriasis
     Dosage: 300 MG
     Route: 065

REACTIONS (6)
  - Immunodeficiency [Unknown]
  - COVID-19 [Recovering/Resolving]
  - Pruritus [Recovered/Resolved]
  - Decreased immune responsiveness [Not Recovered/Not Resolved]
  - Scar [Recovering/Resolving]
  - Nasopharyngitis [Unknown]
